FAERS Safety Report 7826109-8 (Version None)
Quarter: 2011Q4

REPORT INFORMATION
  Report Type: 
  Country: None (occurrence: None)
  Receive Date: 20111019
  Receipt Date: 20111007
  Transmission Date: 20120403
  Serious: Yes (Hospitalization)
  Sender: FDA-Public Use
  Company Number: ES-ROCHE-1003405

PATIENT
  Sex: Male
  Weight: 66 kg

DRUGS (7)
  1. PANTOPRAZOLE [Suspect]
     Indication: CHRONIC LYMPHOCYTIC LEUKAEMIA
     Dates: start: 20110912, end: 20110914
  2. FLUDARABINE PHOSPHATE [Suspect]
     Indication: CHRONIC LYMPHOCYTIC LEUKAEMIA
     Dates: start: 20110912, end: 20110914
  3. MABTHERA [Suspect]
     Indication: CHRONIC LYMPHOCYTIC LEUKAEMIA
     Dates: start: 20110912, end: 20110912
  4. FOLI DOCE [Concomitant]
     Route: 048
  5. VALSARTAN [Concomitant]
     Indication: HYPERTENSION
     Route: 048
  6. SIMVASTATINA [Concomitant]
  7. PANTOPRAZOLE [Concomitant]

REACTIONS (4)
  - HAEMOLYSIS [None]
  - PALLOR [None]
  - ASTHENIA [None]
  - ANAEMIA [None]
